FAERS Safety Report 7954942-0 (Version None)
Quarter: 2011Q4

REPORT INFORMATION
  Report Type: 
  Country: None (occurrence: None)
  Receive Date: 20111202
  Receipt Date: 20111129
  Transmission Date: 20120403
  Serious: Yes (Hospitalization)
  Sender: FDA-Public Use
  Company Number: US-VERTEX PHARMACEUTICALS INC.-AE-2011-004179

PATIENT
  Age: 61 Year
  Sex: Male

DRUGS (4)
  1. INCIVEK [Suspect]
     Indication: HEPATITIS C
     Dates: start: 20111119
  2. RIBAVIIN [Concomitant]
     Indication: HEPATITIS C
  3. INCIVEK [Suspect]
  4. PEGASYS [Concomitant]
     Indication: HEPATITIS C

REACTIONS (1)
  - ABDOMINAL PAIN [None]
